FAERS Safety Report 16080332 (Version 1)
Quarter: 2019Q1

REPORT INFORMATION
  Report Type: Spontaneous
  Country: US (occurrence: US)
  Receive Date: 20190315
  Receipt Date: 20190315
  Transmission Date: 20190418
  Serious: No
  Sender: FDA-Public Use
  Company Number: US-JNJFOC-20190231352

PATIENT
  Age: 7 Decade
  Sex: Male

DRUGS (2)
  1. XARELTO [Suspect]
     Active Substance: RIVAROXABAN
     Indication: CARDIAC DISORDER
     Route: 048
     Dates: start: 20190125, end: 201902
  2. XARELTO [Suspect]
     Active Substance: RIVAROXABAN
     Indication: CARDIAC DISORDER
     Route: 048
     Dates: start: 201902

REACTIONS (11)
  - Product communication issue [Unknown]
  - Chromaturia [Recovering/Resolving]
  - Muscular weakness [Not Recovered/Not Resolved]
  - Product use in unapproved indication [Unknown]
  - Off label use [Unknown]
  - Blood urine present [Recovering/Resolving]
  - Blood creatinine abnormal [Unknown]
  - Incorrect dose administered [Unknown]
  - Gingival bleeding [Recovered/Resolved]
  - Urine odour abnormal [Recovered/Resolved]
  - Ocular hyperaemia [Recovering/Resolving]

NARRATIVE: CASE EVENT DATE: 20190125
